FAERS Safety Report 5573108-5 (Version None)
Quarter: 2007Q4

REPORT INFORMATION
  Report Type: 
  Country: None (occurrence: None)
  Receive Date: 20071220
  Receipt Date: 20071220
  Transmission Date: 20080405
  Serious: Yes (Hospitalization)
  Sender: FDA-Public Use
  Company Number: None

PATIENT
  Age: 80 Year
  Sex: Female
  Weight: 53 kg

DRUGS (9)
  1. ENOXAPARIN SODIUM [Suspect]
     Indication: ATRIAL FIBRILLATION
     Dosage: 50MG Q12H SQ
     Route: 058
  2. AMOXICILLIN + CLAVULANATE POTASSIUM [Concomitant]
  3. IMEPENEM [Concomitant]
  4. LEVOFLOXACIN [Concomitant]
  5. PIPERACILLIN/TAZ [Concomitant]
  6. VANCOMYCIN [Concomitant]
  7. CLINDAMYCIN HCL [Concomitant]
  8. CYMBALTA [Concomitant]
  9. VITAMIN B-12 [Concomitant]

REACTIONS (7)
  - ANAEMIA [None]
  - HAEMORRHAGE [None]
  - HYPOTENSION [None]
  - HYPOVOLAEMIC SHOCK [None]
  - ORAL INTAKE REDUCED [None]
  - RETROPERITONEAL HAEMATOMA [None]
  - VITAMIN K DEFICIENCY [None]
